FAERS Safety Report 4710221-6 (Version None)
Quarter: 2005Q3

REPORT INFORMATION
  Report Type: 
  Country: None (occurrence: None)
  Receive Date: 20050709
  Receipt Date: 20050126
  Transmission Date: 20060218
  Serious: Yes (Hospitalization, Disabling)
  Sender: FDA-Public Use
  Company Number: US-MERCK-0501USA04294

PATIENT
  Age: 49 Year
  Sex: Female
  Weight: 76 kg

DRUGS (5)
  1. VIOXX [Suspect]
     Indication: ARTHRITIS
     Route: 048
     Dates: start: 20020101, end: 20040801
  2. FLONASE [Concomitant]
     Route: 065
  3. ALLEGRA [Concomitant]
     Route: 065
  4. NASACORT [Concomitant]
     Route: 065
  5. ZYRTEC [Concomitant]
     Route: 065

REACTIONS (3)
  - BLOOD CHOLESTEROL INCREASED [None]
  - EMOTIONAL DISTRESS [None]
  - ISCHAEMIC STROKE [None]
